FAERS Safety Report 9852410 (Version 2)
Quarter: 2014Q1

REPORT INFORMATION
  Report Type: Spontaneous
  Country: US (occurrence: None)
  Receive Date: 20140127
  Receipt Date: 20140205
  Transmission Date: 20141002
  Serious: Yes (Other)
  Sender: FDA-Public Use
  Company Number: AUR-APL-2014-00456

PATIENT
  Age: 19 Year
  Sex: Male

DRUGS (4)
  1. FLUOXETINE (FLUOXETINE) [Suspect]
     Indication: PRODUCT USED FOR UNKNOWN INDICATION
  2. AMPHETAMINE [Suspect]
     Indication: PRODUCT USED FOR UNKNOWN INDICATION
  3. LISDEXAMFETAMINE [Suspect]
     Indication: PRODUCT USED FOR UNKNOWN INDICATION
  4. METHYLPHENIDATE [Suspect]
     Indication: PRODUCT USED FOR UNKNOWN INDICATION

REACTIONS (12)
  - Generalised anxiety disorder [None]
  - Tic [None]
  - Palpitations [None]
  - Sedation [None]
  - Decreased appetite [None]
  - Anxiety [None]
  - Restlessness [None]
  - Insomnia [None]
  - Weight decreased [None]
  - Abdominal discomfort [None]
  - Obsessive-compulsive disorder [None]
  - Condition aggravated [None]
